FAERS Safety Report 14715910 (Version 2)
Quarter: 2018Q2

REPORT INFORMATION
  Report Type: Spontaneous
  Country: US (occurrence: US)
  Receive Date: 20180404
  Receipt Date: 20180411
  Transmission Date: 20180711
  Serious: Yes (Other)
  Sender: FDA-Public Use
  Company Number: US-AMGEN-USASP2018004732

PATIENT
  Age: 68 Year
  Sex: Female
  Weight: 67.13 kg

DRUGS (15)
  1. MAXALT [Concomitant]
     Active Substance: RIZATRIPTAN BENZOATE
     Dosage: 10 MG, QD
     Route: 048
  2. ESTRACE [Concomitant]
     Active Substance: ESTRADIOL
     Dosage: 0.1 MG, 3 TIMES/WK
     Route: 067
  3. CLARITIN [Concomitant]
     Active Substance: LORATADINE
     Dosage: 10 MG, QD
     Route: 048
  4. SYNTHROID [Concomitant]
     Active Substance: LEVOTHYROXINE SODIUM
     Dosage: 150 MUG, QD
     Route: 048
  5. DYMISTA [Concomitant]
     Active Substance: AZELASTINE HYDROCHLORIDE\FLUTICASONE PROPIONATE
     Dosage: 137-50 MUG, BID
     Route: 045
  6. PROLIA [Suspect]
     Active Substance: DENOSUMAB
     Indication: PRODUCT USED FOR UNKNOWN INDICATION
     Dosage: 60 MG/ML, UNK
     Route: 058
  7. VITAMIN K [Concomitant]
     Active Substance: PHYTONADIONE
  8. FOLIC ACID. [Concomitant]
     Active Substance: FOLIC ACID
     Dosage: 800 MUG, QD
     Route: 048
  9. MELATONIN [Concomitant]
     Active Substance: MELATONIN
     Dosage: 2.5 MG, QD AT BEDTIME
     Route: 048
  10. MULTIVITAMINS [Concomitant]
     Active Substance: VITAMINS
     Route: 048
  11. CALCIUM [Concomitant]
     Active Substance: CALCIUM
  12. VITAMIN C [Concomitant]
     Active Substance: ASCORBIC ACID
     Dosage: 500 MG, UNK
     Route: 048
  13. AMBIEN [Concomitant]
     Active Substance: ZOLPIDEM TARTRATE
     Dosage: 10 MG, QD (AT BEDTIME)
     Route: 048
  14. MAGNESIUM [Concomitant]
     Active Substance: MAGNESIUM
  15. COQ10 [Concomitant]
     Active Substance: UBIDECARENONE
     Dosage: 60 MG, QD WITH MEAL
     Route: 048

REACTIONS (3)
  - Arthralgia [Unknown]
  - Genital disorder female [Unknown]
  - Bone pain [Not Recovered/Not Resolved]

NARRATIVE: CASE EVENT DATE: 201710
